FAERS Safety Report 7622909-8 (Version None)
Quarter: 2011Q3

REPORT INFORMATION
  Report Type: 
  Country: None (occurrence: None)
  Receive Date: 20110719
  Receipt Date: 20110719
  Transmission Date: 20111222
  Serious: Yes (Other)
  Sender: FDA-Public Use
  Company Number: None

PATIENT
  Sex: Male
  Weight: 81.65 kg

DRUGS (14)
  1. PRILOSEC [Concomitant]
  2. LISINOPRIL [Concomitant]
  3. FISH OIL [Concomitant]
  4. ASPIRIN [Concomitant]
  5. HYDROCHLOROTHIAZIDE [Concomitant]
  6. NITROGLYCERIN [Concomitant]
  7. ZYTIGA [Suspect]
     Indication: PROSTATE CANCER
     Dosage: 1000MG DAILY BY MOUTH
     Route: 048
     Dates: start: 20110524, end: 20110615
  8. PREDNISONE [Concomitant]
  9. RENEXA [Concomitant]
  10. ZYRTEC [Concomitant]
  11. TOPROL-XL [Concomitant]
  12. NIACIN [Concomitant]
  13. CALCIUM 800 HIGH POTENCY [Concomitant]
  14. JANUVIA [Concomitant]

REACTIONS (2)
  - MYALGIA [None]
  - MOVEMENT DISORDER [None]
